FAERS Safety Report 24555895 (Version 1)
Quarter: 2024Q4

REPORT INFORMATION
  Report Type: Spontaneous
  Country: CA (occurrence: CA)
  Receive Date: 20241028
  Receipt Date: 20241028
  Transmission Date: 20250114
  Serious: Yes (Disabling)
  Sender: TEVA
  Company Number: CA-TEVA-VS-3255940

PATIENT
  Age: 51 Year
  Sex: Female
  Weight: 56 kg

DRUGS (3)
  1. MOXIFLOXACIN [Suspect]
     Active Substance: MOXIFLOXACIN
     Indication: Pneumonia
     Route: 048
  2. LEVOTHYROXINE [Concomitant]
     Active Substance: LEVOTHYROXINE
     Indication: Product used for unknown indication
     Route: 065
  3. VITAMINS [Concomitant]
     Active Substance: VITAMINS
     Indication: Product used for unknown indication
     Dosage: DOSE FORM: NOT SPECIFIED
     Route: 065

REACTIONS (21)
  - Joint noise [Recovering/Resolving]
  - Thirst [Recovering/Resolving]
  - Hypoaesthesia [Recovering/Resolving]
  - Nightmare [Recovering/Resolving]
  - Palpitations [Recovering/Resolving]
  - Sinus disorder [Recovering/Resolving]
  - Paraesthesia [Recovering/Resolving]
  - Insomnia [Recovering/Resolving]
  - Tremor [Recovering/Resolving]
  - Depressed mood [Recovering/Resolving]
  - Back pain [Recovering/Resolving]
  - Tinnitus [Recovering/Resolving]
  - Muscle twitching [Recovering/Resolving]
  - Dizziness [Recovering/Resolving]
  - Muscle spasms [Recovering/Resolving]
  - Tension headache [Recovering/Resolving]
  - Sleep apnoea syndrome [Recovering/Resolving]
  - Anxiety [Recovering/Resolving]
  - Peripheral coldness [Recovering/Resolving]
  - Mental status changes [Recovering/Resolving]
  - Pain in extremity [Recovering/Resolving]
